FAERS Safety Report 4696630-2 (Version None)
Quarter: 2005Q2

REPORT INFORMATION
  Report Type: 
  Country: None (occurrence: None)
  Receive Date: 20050620
  Receipt Date: 20050107
  Transmission Date: 20051028
  Serious: No
  Sender: FDA-Public Use
  Company Number: A-US2005-08537

PATIENT
  Age: 43 Year
  Sex: Female
  Weight: 66.2 kg

DRUGS (4)
  1. ZAVESCA [Suspect]
     Indication: GAUCHER'S DISEASE
     Dosage: 100 MG, TID, ORAL
     Route: 048
     Dates: start: 20041214
  2. PROZAC [Concomitant]
  3. SYNTHROID [Concomitant]
  4. CEREZYME (MIGLUCERASE) [Concomitant]

REACTIONS (2)
  - HEART RATE IRREGULAR [None]
  - TREMOR [None]
